FAERS Safety Report 7505256-4 (Version None)
Quarter: 2011Q2

REPORT INFORMATION
  Report Type: 
  Country: None (occurrence: None)
  Receive Date: 20110519
  Receipt Date: 20110509
  Transmission Date: 20111010
  Serious: Yes (Other)
  Sender: FDA-Public Use
  Company Number: RB-25002-2011

PATIENT
  Age: 18 Year
  Sex: Male

DRUGS (1)
  1. DELSYM [Suspect]
     Dosage: (DRANK HALF A BOTTLE ORAL)
     Route: 048
     Dates: start: 20110509

REACTIONS (2)
  - INCORRECT DOSE ADMINISTERED [None]
  - HALLUCINATION [None]
